FAERS Safety Report 5243528-7 (Version None)
Quarter: 2007Q1

REPORT INFORMATION
  Report Type: 
  Country: None (occurrence: None)
  Receive Date: 20070222
  Receipt Date: 20070209
  Transmission Date: 20070707
  Serious: Yes (Disabling, Other)
  Sender: FDA-Public Use
  Company Number: PHBS2006JP19748

PATIENT
  Age: 54 Year
  Sex: Female

DRUGS (1)
  1. ZOMETA [Suspect]
     Indication: BREAST CANCER
     Route: 065

REACTIONS (6)
  - BONE DISORDER [None]
  - GINGIVAL PAIN [None]
  - GINGIVAL SWELLING [None]
  - MUCOSAL INFLAMMATION [None]
  - OSTEOMYELITIS [None]
  - OSTEONECROSIS [None]
